FAERS Safety Report 12391962 (Version 1)
Quarter: 2016Q2

REPORT INFORMATION
  Report Type: Spontaneous
  Country: DE (occurrence: DE)
  Receive Date: 20160523
  Receipt Date: 20160523
  Transmission Date: 20160815
  Serious: Yes (Other)
  Sender: FDA-Public Use
  Company Number: DE-009507513-1605DEU009722

PATIENT
  Age: 70 Year
  Sex: Female

DRUGS (10)
  1. BELOC-ZOK [Concomitant]
     Active Substance: METOPROLOL SUCCINATE
  2. TORSEMIDE. [Concomitant]
     Active Substance: TORSEMIDE
  3. PANTOPRAZOLE [Concomitant]
     Active Substance: PANTOPRAZOLE SODIUM
  4. DELIX (RAMIPRIL) [Concomitant]
     Active Substance: RAMIPRIL
  5. DELIX PLUS [Concomitant]
     Active Substance: HYDROCHLOROTHIAZIDE\RAMIPRIL
  6. ASPIRIN PROTECT [Concomitant]
     Active Substance: ASPIRIN
  7. ATOZET 10 MG/40 MG [Suspect]
     Active Substance: ATORVASTATIN CALCIUM\EZETIMIBE
     Indication: LOW DENSITY LIPOPROTEIN INCREASED
     Route: 048
  8. ATOZET 10 MG/80 MG [Suspect]
     Active Substance: ATORVASTATIN CALCIUM\EZETIMIBE
     Indication: LOW DENSITY LIPOPROTEIN INCREASED
     Route: 048
  9. NITROLINGUAL [Concomitant]
     Active Substance: NITROGLYCERIN
  10. METFORMIN [Concomitant]
     Active Substance: METFORMIN HYDROCHLORIDE

REACTIONS (3)
  - Catheterisation cardiac [Unknown]
  - Palpitations [None]
  - Arrhythmia [None]
